FAERS Safety Report 9204672 (Version 1)
Quarter: 2013Q1

REPORT INFORMATION
  Report Type: Spontaneous
  Country: US (occurrence: None)
  Receive Date: 20120709
  Receipt Date: 20120709
  Transmission Date: 20140127
  Serious: Yes (Disabling)
  Sender: FDA-Public Use
  Company Number: PHEH2011US03149

PATIENT
  Age: 71 Year
  Sex: Female
  Weight: 76.4 kg

DRUGS (13)
  1. GLEEVEC [Suspect]
     Route: 048
  2. ASASION (TRAIAZOLAM) [Concomitant]
  3. CALCIUM (CALCIUM) [Concomitant]
  4. ESTRACE (ESTRADIOL) [Concomitant]
  5. IPRATROPIUM BROMIDE (IPRATROPIUM BROMIDE ) [Concomitant]
  6. LISINOPRIL (LISINOPRIL) [Concomitant]
  7. SIMVASTATIN) (SIMVASTATIN) [Concomitant]
  8. ZYRTEC (CETIRAZINE HYDROCHLORIDE) [Concomitant]
  9. COLACE (DOCUSATE SODIUM) [Concomitant]
  10. ACETYLSALICYLIC ACID (ACETYLSALICYLIC ACID) [Concomitant]
  11. NASONEX (MOMETASONE FUROATE) [Concomitant]
  12. TOPROL XL (METOPROLOL SUCCINATE) [Concomitant]
  13. OMEPRAZOLE (OMEPRAZOLE) [Concomitant]

REACTIONS (5)
  - Muscle spasms [None]
  - Eye swelling [None]
  - Oedema peripheral [None]
  - Gastrooesophageal reflux disease [None]
  - Myalgia [None]
